FAERS Safety Report 20178420 (Version 1)
Quarter: 2021Q4

REPORT INFORMATION
  Report Type: Spontaneous
  Country: JP (occurrence: JP)
  Receive Date: 20211213
  Receipt Date: 20211213
  Transmission Date: 20220303
  Serious: Yes (Death, Hospitalization)
  Sender: FDA-Public Use
  Company Number: JP-TEVA-2021-JP-005078J

PATIENT
  Age: 91 Year
  Sex: Female
  Weight: 30 kg

DRUGS (12)
  1. FUROSEMIDE [Suspect]
     Active Substance: FUROSEMIDE
     Indication: Oedema
     Dosage: 20 MILLIGRAM DAILY;
     Route: 048
     Dates: start: 202008, end: 20210515
  2. FUROSEMIDE [Suspect]
     Active Substance: FUROSEMIDE
     Indication: Cardiac failure
     Dosage: 20 MILLIGRAM DAILY;
     Route: 048
     Dates: start: 20210518, end: 20210522
  3. AZILSARTAN KAMEDOXOMIL [Concomitant]
     Active Substance: AZILSARTAN KAMEDOXOMIL
     Route: 065
  4. URAPIDIL [Concomitant]
     Active Substance: URAPIDIL
     Route: 065
  5. LEVETIRACETAM [Concomitant]
     Active Substance: LEVETIRACETAM
     Route: 065
  6. AMLODIPINE [Concomitant]
     Active Substance: AMLODIPINE BESYLATE
     Route: 065
  7. MIRABEGRON [Concomitant]
     Active Substance: MIRABEGRON
     Route: 065
  8. TSUMURA HACHIMIJIOGAN EXTRACT GRANULES FOR ETHICAL USE [Concomitant]
     Route: 065
  9. SENNOSIDES [Concomitant]
     Active Substance: SENNOSIDES
     Route: 065
  10. PIRENOXINE [Concomitant]
     Active Substance: PIRENOXINE
     Route: 065
  11. PRANOPROFEN [Concomitant]
     Active Substance: PRANOPROFEN
     Route: 065
  12. MIRCERA [Concomitant]
     Active Substance: METHOXY POLYETHYLENE GLYCOL-EPOETIN BETA
     Route: 065

REACTIONS (1)
  - Hypoglycaemia [Fatal]

NARRATIVE: CASE EVENT DATE: 20210515
